FAERS Safety Report 6228930-9 (Version None)
Quarter: 2009Q2

REPORT INFORMATION
  Report Type: 
  Country: None (occurrence: None)
  Receive Date: 20090615
  Receipt Date: 20090609
  Transmission Date: 20091009
  Serious: Yes (Death)
  Sender: FDA-Public Use
  Company Number: US-ROCHE-634601

PATIENT
  Sex: Female
  Weight: 63.5 kg

DRUGS (1)
  1. CAPECITABINE [Suspect]
     Indication: SALIVARY GLAND CANCER
     Route: 048
     Dates: start: 20090502

REACTIONS (1)
  - METASTATIC SALIVARY GLAND CANCER [None]
